FAERS Safety Report 13199986 (Version 2)
Quarter: 2017Q1

REPORT INFORMATION
  Report Type: Report from Study
  Country: None (occurrence: CA)
  Receive Date: 20170208
  Receipt Date: 20170213
  Transmission Date: 20170428
  Serious: Yes (Hospitalization)
  Sender: FDA-Public Use
  Company Number: CA-ABBVIE-17P-028-1868131-00

PATIENT
  Sex: Male
  Weight: 70.5 kg

DRUGS (7)
  1. INSULINE HUMALOG [Concomitant]
     Indication: PRODUCT USED FOR UNKNOWN INDICATION
  2. MODERIBA [Suspect]
     Active Substance: RIBAVIRIN
     Indication: HEPATITIS C
     Route: 048
     Dates: start: 20170117
  3. LANTUS [Concomitant]
     Active Substance: INSULIN GLARGINE
     Indication: PRODUCT USED FOR UNKNOWN INDICATION
  4. COVERSYL [Concomitant]
     Active Substance: PERINDOPRIL
     Indication: PRODUCT USED FOR UNKNOWN INDICATION
  5. MODERIBA [Suspect]
     Active Substance: RIBAVIRIN
     Dosage: DOSE DECREASED
     Route: 048
     Dates: start: 20170131
  6. KAYEXALATE [Concomitant]
     Active Substance: SODIUM POLYSTYRENE SULFONATE
     Indication: PRODUCT USED FOR UNKNOWN INDICATION
  7. HOLKIRA PAK [Suspect]
     Active Substance: DASABUVIR\OMBITASVIR\PARITAPREVIR\RITONAVIR
     Indication: HEPATITIS C
     Dosage: OMBITASVIR/PARITAPREVIR/RITONAVIR 150/100/25MG, DASABUVIR 250MG
     Route: 048
     Dates: start: 20170117

REACTIONS (2)
  - Hypotension [Unknown]
  - Asthenia [Unknown]

NARRATIVE: CASE EVENT DATE: 20170203
